FAERS Safety Report 26173705 (Version 1)
Quarter: 2025Q4

REPORT INFORMATION
  Report Type: Spontaneous
  Country: US (occurrence: US)
  Receive Date: 20251218
  Receipt Date: 20251218
  Transmission Date: 20260118
  Serious: Yes (Other)
  Sender: AMGEN
  Company Number: US-AMGEN-USASP2025246134

PATIENT
  Age: 73 Year
  Sex: Female

DRUGS (1)
  1. REPATHA [Suspect]
     Active Substance: EVOLOCUMAB
     Indication: Product used for unknown indication
     Dosage: 140 MILLIGRAM
     Route: 065

REACTIONS (19)
  - Brain neoplasm [Unknown]
  - Cerebral small vessel ischaemic disease [Unknown]
  - Noninfective encephalitis [Unknown]
  - Lupus-like syndrome [Unknown]
  - Meniere^s disease [Unknown]
  - Wrong technique in product usage process [Unknown]
  - General physical health deterioration [Unknown]
  - Headache [Unknown]
  - Abdominal discomfort [Unknown]
  - Pancreatic disorder [Unknown]
  - Spinal osteoarthritis [Unknown]
  - Asthma [Unknown]
  - Dysstasia [Unknown]
  - Intervertebral disc compression [Unknown]
  - Spinal deformity [Unknown]
  - Product storage error [Unknown]
  - Device difficult to use [Unknown]
  - Raynaud^s phenomenon [Unknown]
  - Osteoporosis [Unknown]

NARRATIVE: CASE EVENT DATE: 20251210
